FAERS Safety Report 12772396 (Version 1)
Quarter: 2016Q3

REPORT INFORMATION
  Report Type: Spontaneous
  Country: JP (occurrence: JP)
  Receive Date: 20160922
  Receipt Date: 20160922
  Transmission Date: 20161109
  Serious: Yes (Hospitalization, Other)
  Sender: FDA-Public Use
  Company Number: JP-PFIZER INC-2016442841

PATIENT
  Age: 82 Year
  Sex: Female

DRUGS (4)
  1. SULPERAZON [Suspect]
     Active Substance: CEFOPERAZONE SODIUM\SULBACTAM SODIUM
     Indication: INFECTION
     Dosage: 1 G, 2X/DAY
     Route: 042
     Dates: start: 20160731, end: 20160812
  2. LOCHOL [Concomitant]
     Active Substance: FLUVASTATIN SODIUM
     Dosage: UNK
     Dates: start: 20160711, end: 20160905
  3. PANSPORIN [Suspect]
     Active Substance: CEFOTIAM HYDROCHLORIDE
     Indication: INFECTION
     Dosage: 1 G, 2X/DAY
     Route: 042
     Dates: start: 20160722, end: 20160729
  4. INTAL [Suspect]
     Active Substance: CROMOLYN SODIUM
     Indication: ASTHMA
     Dosage: 1 MG, 2X/DAY
     Route: 055
     Dates: start: 19981207, end: 20160813

REACTIONS (1)
  - Interstitial lung disease [Recovering/Resolving]

NARRATIVE: CASE EVENT DATE: 20160805
